FAERS Safety Report 17754655 (Version 2)
Quarter: 2020Q2

REPORT INFORMATION
  Report Type: Spontaneous
  Country: CA (occurrence: CA)
  Receive Date: 20200507
  Receipt Date: 20200611
  Transmission Date: 20200714
  Serious: Yes (Hospitalization)
  Sender: FDA-Public Use
  Company Number: CA-CELLTRION INC.-2019CA024841

PATIENT

DRUGS (12)
  1. ASACOL [Concomitant]
     Active Substance: MESALAMINE
     Dosage: 2.4 G, 1X/DAY - 2X/DAY
     Route: 065
     Dates: start: 201907
  2. INFLECTRA [Suspect]
     Active Substance: INFLIXIMAB-DYYB
     Dosage: 600 MG, (Q 0, 2, 6 WEEKS, THEN EVERY 4 WEEKS)
     Route: 042
     Dates: start: 20200402
  3. IMURAN [Concomitant]
     Active Substance: AZATHIOPRINE
     Dosage: UNK
     Route: 065
  4. INFLECTRA [Suspect]
     Active Substance: INFLIXIMAB-DYYB
     Dosage: 600 MG, (Q 0, 2, 6 WEEKS, THEN EVERY 4 WEEKS)
     Route: 042
     Dates: start: 20200206
  5. INFLECTRA [Suspect]
     Active Substance: INFLIXIMAB-DYYB
     Dosage: 600 MG, (Q 0, 2, 6 WEEKS, THEN EVERY 4 WEEKS)
     Route: 042
     Dates: start: 20200305
  6. INFLECTRA [Suspect]
     Active Substance: INFLIXIMAB-DYYB
     Dosage: 10MG/KG, (EVERY) 4 WEEKS
     Route: 042
  7. INFLECTRA [Suspect]
     Active Substance: INFLIXIMAB-DYYB
     Dosage: 600 MG, (Q 0, 2, 6 WEEKS, THEN EVERY 4 WEEKS)
     Route: 042
     Dates: start: 20200402
  8. INFLECTRA [Suspect]
     Active Substance: INFLIXIMAB-DYYB
     Dosage: 600 MG, (Q 0, 2, 6 WEEKS, THEN EVERY 4 WEEKS)
     Route: 042
     Dates: start: 20191017
  9. INFLECTRA [Suspect]
     Active Substance: INFLIXIMAB-DYYB
     Dosage: 600 MG, (Q 0, 2, 6 WEEKS, THEN EVERY 4 WEEKS)
     Route: 042
     Dates: start: 20200206
  10. INFLECTRA [Suspect]
     Active Substance: INFLIXIMAB-DYYB
     Dosage: 600 MG, (Q 0, 2, 6 WEEKS, THEN EVERY 4 WEEKS)
     Route: 042
     Dates: start: 20200206
  11. INFLECTRA [Suspect]
     Active Substance: INFLIXIMAB-DYYB
     Indication: COLITIS ULCERATIVE
     Dosage: 600 MG, (Q 0, 2, 6 WEEKS, THEN EVERY 8 WEEKS)
     Route: 042
     Dates: start: 20190826, end: 20190826
  12. INFLECTRA [Suspect]
     Active Substance: INFLIXIMAB-DYYB
     Dosage: 600 MG, (Q 0, 2, 6 WEEKS, THEN EVERY 4 WEEKS)
     Route: 042
     Dates: start: 20190916

REACTIONS (5)
  - Off label use [Unknown]
  - Weight decreased [Unknown]
  - Treatment failure [Unknown]
  - Condition aggravated [Unknown]
  - Discomfort [Unknown]
